FAERS Safety Report 7814373-0 (Version None)
Quarter: 2011Q4

REPORT INFORMATION
  Report Type: 
  Country: None (occurrence: None)
  Receive Date: 20111011
  Receipt Date: 20111006
  Transmission Date: 20120403
  Serious: Yes (Hospitalization, Disabling, Other)
  Sender: FDA-Public Use
  Company Number: 2010SP042178

PATIENT
  Age: 21 Year
  Sex: Female
  Weight: 88.4514 kg

DRUGS (3)
  1. TYLENOL-500 [Concomitant]
  2. MOTRIN [Concomitant]
  3. NUVARING [Suspect]
     Indication: CONTRACEPTION
     Dates: start: 20070101, end: 20080828

REACTIONS (63)
  - PAIN [None]
  - PLEURISY [None]
  - TRICUSPID VALVE INCOMPETENCE [None]
  - ABSCESS [None]
  - HYPOMAGNESAEMIA [None]
  - CERVICAL DYSPLASIA [None]
  - WART EXCISION [None]
  - OSTEOPOROSIS [None]
  - ANTIPHOSPHOLIPID SYNDROME [None]
  - HYPERCOAGULATION [None]
  - ATELECTASIS [None]
  - SPINAL COMPRESSION FRACTURE [None]
  - HYPERTENSION [None]
  - PULMONARY HAEMORRHAGE [None]
  - ACROCHORDON [None]
  - PULMONARY EMBOLISM [None]
  - LEFT ATRIAL DILATATION [None]
  - CHOKING [None]
  - BACK PAIN [None]
  - INTERVERTEBRAL DISC PROTRUSION [None]
  - RENAL FAILURE ACUTE [None]
  - HYPOTENSION [None]
  - INTERNATIONAL NORMALISED RATIO INCREASED [None]
  - DILATATION VENTRICULAR [None]
  - OVARIAN CYST [None]
  - DEEP VEIN THROMBOSIS [None]
  - PORTAL VEIN THROMBOSIS [None]
  - OSTEOPENIA [None]
  - EYE DISCHARGE [None]
  - ASTHENIA [None]
  - COAGULOPATHY [None]
  - EXCORIATION [None]
  - CELLULITIS [None]
  - NEUTROPENIA [None]
  - OSTEOARTHRITIS [None]
  - SINUS HEADACHE [None]
  - DIZZINESS [None]
  - SINUS BRADYCARDIA [None]
  - SICK SINUS SYNDROME [None]
  - ANOGENITAL WARTS [None]
  - HEADACHE [None]
  - PULMONARY HYPERTENSION [None]
  - MUSCLE SPASMS [None]
  - DEHYDRATION [None]
  - MENORRHAGIA [None]
  - BRONCHITIS [None]
  - PLEURAL EFFUSION [None]
  - LUNG NEOPLASM [None]
  - MATERNAL EXPOSURE BEFORE PREGNANCY [None]
  - ANAEMIA [None]
  - PANCYTOPENIA [None]
  - MEDICATION ERROR [None]
  - HYPOXIA [None]
  - CONSTIPATION [None]
  - SYSTEMIC LUPUS ERYTHEMATOSUS [None]
  - MIGRAINE [None]
  - BACK INJURY [None]
  - FATIGUE [None]
  - GASTROOESOPHAGEAL REFLUX DISEASE [None]
  - WEIGHT INCREASED [None]
  - ARTHROPOD BITE [None]
  - OCULAR HYPERAEMIA [None]
  - MULTIPLE ALLERGIES [None]
